FAERS Safety Report 6406902-9 (Version None)
Quarter: 2009Q4

REPORT INFORMATION
  Report Type: 
  Country: None (occurrence: None)
  Receive Date: 20091015
  Receipt Date: 20091009
  Transmission Date: 20100525
  Serious: No
  Sender: FDA-Public Use
  Company Number: 20097535

PATIENT
  Sex: Male

DRUGS (1)
  1. LIORESAL [Suspect]
     Indication: MUSCLE SPASTICITY
     Dosage: 367 MCG, DAILY, INTRATHECAL
     Route: 037

REACTIONS (3)
  - DELAYED RECOVERY FROM ANAESTHESIA [None]
  - DEVICE MALFUNCTION [None]
  - OVERDOSE [None]
